FAERS Safety Report 7949617-8 (Version None)
Quarter: 2011Q4

REPORT INFORMATION
  Report Type: 
  Country: None (occurrence: None)
  Receive Date: 20111130
  Receipt Date: 20111115
  Transmission Date: 20120403
  Serious: Yes (Other)
  Sender: FDA-Public Use
  Company Number: US-BAYER-2011-064610

PATIENT
  Age: 23 Year
  Sex: Female
  Weight: 57 kg

DRUGS (5)
  1. AUGMENTIN [Concomitant]
     Dosage: 875 MG, BID
     Dates: start: 20090901
  2. PERCOCET [Concomitant]
     Dosage: UNK UNK, PRN
     Route: 048
  3. DROSPIRENONE AND ETHINYL ESTRADIOL [Suspect]
     Indication: PRODUCT USED FOR UNKNOWN INDICATION
     Dosage: UNK
     Dates: start: 20090401, end: 20091001
  4. LEXAPRO [Concomitant]
     Route: 048
  5. YAZ [Suspect]
     Indication: PRODUCT USED FOR UNKNOWN INDICATION
     Dosage: UNK
     Dates: start: 20090401, end: 20091001

REACTIONS (7)
  - CHOLECYSTITIS CHRONIC [None]
  - ABDOMINAL PAIN [None]
  - GALLBLADDER DISORDER [None]
  - INJURY [None]
  - DYSPEPSIA [None]
  - PAIN [None]
  - PROCEDURAL PAIN [None]
